FAERS Safety Report 6221422-2 (Version None)
Quarter: 2009Q2

REPORT INFORMATION
  Report Type: 
  Country: None (occurrence: None)
  Receive Date: 20090610
  Receipt Date: 20090527
  Transmission Date: 20091009
  Serious: Yes (Hospitalization, Other)
  Sender: FDA-Public Use
  Company Number: US-ELI_LILLY_AND_COMPANY-US200901002118

PATIENT
  Sex: Female

DRUGS (4)
  1. FORTEO [Suspect]
     Indication: OSTEOPOROSIS
     Dosage: 20 UG, DAILY (1/D)
     Dates: start: 20081229
  2. FORTEO [Suspect]
     Dosage: 20 UG, DAILY (1/D)
     Dates: end: 20090520
  3. ASPIRIN [Concomitant]
     Dosage: 2 UNK, DAILY (1/D)
  4. ACTONEL [Concomitant]
     Dosage: UNK, MONTHLY (1/M)
     Dates: start: 20090527

REACTIONS (6)
  - ARTHRALGIA [None]
  - CONSTIPATION [None]
  - MALAISE [None]
  - MYALGIA [None]
  - PERIPHERAL VASCULAR DISORDER [None]
  - TREMOR [None]
